FAERS Safety Report 9808465 (Version 2)
Quarter: 2014Q1

REPORT INFORMATION
  Report Type: Spontaneous
  Country: US (occurrence: US)
  Receive Date: 20140110
  Receipt Date: 20140110
  Transmission Date: 20141002
  Serious: No
  Sender: FDA-Public Use
  Company Number: US-GILEAD-2010-0027667

PATIENT
  Sex: Male

DRUGS (2)
  1. VIREAD [Suspect]
     Indication: PRODUCT USED FOR UNKNOWN INDICATION
  2. BARACLUDE [Concomitant]

REACTIONS (2)
  - Anxiety [Recovered/Resolved]
  - Palpitations [Recovered/Resolved]
